FAERS Safety Report 7577912-3 (Version None)
Quarter: 2011Q2

REPORT INFORMATION
  Report Type: 
  Country: None (occurrence: None)
  Receive Date: 20110628
  Receipt Date: 20110622
  Transmission Date: 20111010
  Serious: Yes (Death, Other)
  Sender: FDA-Public Use
  Company Number: PHHY2011CA47629

PATIENT
  Sex: Female

DRUGS (12)
  1. FERROUS SULFATE TAB [Concomitant]
  2. ASPIRIN [Concomitant]
     Dosage: 81 MG, QD
  3. CALCIUM CARBONATE [Concomitant]
     Dosage: 250 MG, BID
  4. SIMVASTATIN [Concomitant]
     Dosage: 20 UNK, QD
  5. IPRATROPIUM BROMIDE [Concomitant]
     Dosage: 40 MG, QID
  6. OXYCODONE HCL [Concomitant]
     Dosage: 2.5 MG, QID
  7. ALENDRONATE SODIUM [Concomitant]
     Dosage: 70/ UNK
  8. CLOZAPINE [Suspect]
     Indication: SCHIZOPHRENIA
     Dosage: 100 MG, HS
     Route: 048
     Dates: start: 20041109, end: 20110422
  9. SENNOSIDE [Concomitant]
  10. MIRTAZAPINE [Concomitant]
     Dosage: 15 HS
  11. ACETAMINOPHEN [Concomitant]
     Dosage: 1 G, UNK
  12. VITAMIN D [Concomitant]
     Dosage: 1000 UNK, QD

REACTIONS (9)
  - OXYGEN SATURATION DECREASED [None]
  - RESPIRATORY DISORDER [None]
  - ANTIPSYCHOTIC DRUG LEVEL INCREASED [None]
  - PNEUMONIA [None]
  - DEATH [None]
  - VOMITING [None]
  - SCHIZOPHRENIA [None]
  - DELUSION [None]
  - BLOOD PRESSURE DECREASED [None]
